FAERS Safety Report 6694003-4 (Version None)
Quarter: 2010Q2

REPORT INFORMATION
  Report Type: 
  Country: None (occurrence: None)
  Receive Date: 20100423
  Receipt Date: 20100416
  Transmission Date: 20101027
  Serious: Yes (Hospitalization, Other)
  Sender: FDA-Public Use
  Company Number: US-ASTRAZENECA-2010SE17212

PATIENT
  Age: 60 Year
  Sex: Male
  Weight: 123.8 kg

DRUGS (5)
  1. SEROQUEL [Suspect]
     Indication: DEPRESSION
     Route: 048
     Dates: start: 20100301
  2. SEROQUEL [Suspect]
     Indication: ANXIETY
     Route: 048
     Dates: start: 20100301
  3. HALCION [Concomitant]
  4. ATIVAN [Concomitant]
  5. DOXEPIN HCL [Concomitant]

REACTIONS (4)
  - GAIT DISTURBANCE [None]
  - HALLUCINATION, AUDITORY [None]
  - LOSS OF CONSCIOUSNESS [None]
  - THROMBOSIS [None]
